FAERS Safety Report 16787703 (Version 3)
Quarter: 2020Q2

REPORT INFORMATION
  Report Type: Spontaneous
  Country: DE (occurrence: DE)
  Receive Date: 20190909
  Receipt Date: 20200513
  Transmission Date: 20200713
  Serious: Yes (Hospitalization)
  Sender: FDA-Public Use
  Company Number: DE-BAUSCH-BL-2019-025758

PATIENT
  Age: 67 Year
  Sex: Female

DRUGS (3)
  1. LATANOPROST. [Suspect]
     Active Substance: LATANOPROST
     Indication: GLAUCOMA
     Dosage: 1 GTT, ONE IN ONE DAY (IN THE EVENING AT BEDTIME)
     Route: 047
     Dates: end: 201903
  2. BIMATO VISION [Concomitant]
     Indication: PRODUCT USED FOR UNKNOWN INDICATION
  3. LATANOPROST. [Suspect]
     Active Substance: LATANOPROST
     Route: 047
     Dates: start: 201711, end: 201904

REACTIONS (3)
  - Cardiac disorder [Unknown]
  - Cough [Recovered/Resolved]
  - Insomnia [Unknown]

NARRATIVE: CASE EVENT DATE: 201804
